FAERS Safety Report 13977336 (Version 1)
Quarter: 2017Q3

REPORT INFORMATION
  Report Type: Other
  Country: US (occurrence: US)
  Receive Date: 20170915
  Receipt Date: 20170915
  Transmission Date: 20171128
  Serious: Yes (Hospitalization)
  Sender: FDA-Public Use
  Company Number: US-FAMILY DOLLAR SERVICES, INC-2026435

PATIENT
  Age: 5 Month
  Sex: Male
  Weight: 7.27 kg

DRUGS (1)
  1. PEDIATRIC ELECTROLYTE ZINC GRAPE [Suspect]
     Active Substance: DEXTROSE\ELECTROLYTES NOS
     Indication: VOMITING
     Route: 048
     Dates: start: 20170905, end: 20170905

REACTIONS (3)
  - Diarrhoea [Recovered/Resolved]
  - Pyrexia [Recovered/Resolved]
  - Product contamination [None]

NARRATIVE: CASE EVENT DATE: 20170905
